FAERS Safety Report 5206516-2 (Version None)
Quarter: 2006Q4

REPORT INFORMATION
  Report Type: 
  Country: None (occurrence: None)
  Receive Date: 20061026
  Receipt Date: 20060824
  Transmission Date: 20070319
  Serious: No
  Sender: FDA-Public Use
  Company Number: 2006104619

PATIENT
  Sex: Female

DRUGS (4)
  1. LYRICA [Suspect]
     Indication: FIBROMYALGIA
     Dosage: (300 MG)
     Dates: start: 20060701
  2. NEURONTIN [Suspect]
     Indication: FIBROMYALGIA
  3. KLONOPIN [Concomitant]
  4. HYDROCODONE BITARTRATE [Concomitant]

REACTIONS (4)
  - DRUG TOLERANCE [None]
  - PAIN [None]
  - THERAPEUTIC RESPONSE DELAYED [None]
  - THERAPY REGIMEN CHANGED [None]
